FAERS Safety Report 4674999-2 (Version None)
Quarter: 2005Q2

REPORT INFORMATION
  Report Type: 
  Country: None (occurrence: None)
  Receive Date: 20050525
  Receipt Date: 20050519
  Transmission Date: 20051028
  Serious: Yes (Death, Hospitalization)
  Sender: FDA-Public Use
  Company Number: 163-20785-04110170

PATIENT
  Age: 57 Year
  Sex: Female

DRUGS (1)
  1. THALOMID [Suspect]
     Indication: MULTIPLE MYELOMA
     Dosage: 200 MG, DAILY, ORAL
     Route: 048
     Dates: start: 20030616, end: 20040827

REACTIONS (17)
  - ACUTE MYOCARDIAL INFARCTION [None]
  - CHILLS [None]
  - CONFUSIONAL STATE [None]
  - CYTOMEGALOVIRUS TEST POSITIVE [None]
  - DISEASE PROGRESSION [None]
  - DIVERTICULITIS [None]
  - HYPOTENSION [None]
  - HYPOXIA [None]
  - MENTAL STATUS CHANGES [None]
  - MULTI-ORGAN FAILURE [None]
  - PLEURISY [None]
  - PYREXIA [None]
  - RASH ERYTHEMATOUS [None]
  - RENAL IMPAIRMENT [None]
  - SEPSIS [None]
  - STEM CELL TRANSPLANT [None]
  - SUPRAVENTRICULAR TACHYCARDIA [None]
